FAERS Safety Report 20016882 (Version 1)
Quarter: 2021Q4

REPORT INFORMATION
  Report Type: Spontaneous
  Country: US (occurrence: None)
  Receive Date: 20211105
  Receipt Date: 20211105
  Transmission Date: 20220303
  Serious: Yes (Other)
  Sender: FDA-Public Use
  Company Number: None

PATIENT
  Age: 58 Year
  Sex: Female
  Weight: 80.1 kg

DRUGS (14)
  1. EMGALITY [Suspect]
     Active Substance: GALCANEZUMAB-GNLM
     Indication: Migraine prophylaxis
     Dosage: OTHER QUANTITY : 1 INJECTION(S);?OTHER FREQUENCY : ONCE PER MONTH;?
     Route: 030
     Dates: start: 20210811, end: 20211011
  2. OLMESARTAN [Concomitant]
     Active Substance: OLMESARTAN
  3. ASPIRIN [Concomitant]
     Active Substance: ASPIRIN
  4. LEVOTHYROXINE [Concomitant]
     Active Substance: LEVOTHYROXINE
  5. MONTELUKAST [Concomitant]
     Active Substance: MONTELUKAST SODIUM
  6. PRILOSEC [Concomitant]
     Active Substance: OMEPRAZOLE MAGNESIUM
  7. WELLBUTRIN [Concomitant]
     Active Substance: BUPROPION HYDROCHLORIDE
  8. ZYRTEC [Concomitant]
     Active Substance: CETIRIZINE HYDROCHLORIDE
  9. ZONEGRAN [Concomitant]
     Active Substance: ZONISAMIDE
  10. DEVICE [Concomitant]
     Active Substance: DEVICE
  11. BOTOX [Concomitant]
     Active Substance: ONABOTULINUMTOXINA
  12. CALCIUM CITRATE [Concomitant]
     Active Substance: CALCIUM CITRATE
  13. VITAMIN D [Concomitant]
     Active Substance: VITAMIN D NOS
  14. MAGNESIUM [Concomitant]
     Active Substance: MAGNESIUM

REACTIONS (6)
  - Blood pressure inadequately controlled [None]
  - Blood pressure increased [None]
  - Palpitations [None]
  - Anxiety [None]
  - Alopecia [None]
  - Depression [None]

NARRATIVE: CASE EVENT DATE: 20211104
